FAERS Safety Report 8236346 (Version 7)
Quarter: 2012Q4

REPORT INFORMATION
  Report Type: 
  Country: US (occurrence: US)
  Receive Date: 20111108
  Receipt Date: 20121106
  Transmission Date: 20130627
  Serious: Yes (Other)
  Sender: FDA-Public Use
  Company Number: US-ACTELION-A-US2011-56636

PATIENT
  Age: 28 Year
  Sex: Female

DRUGS (5)
  1. TRACLEER [Suspect]
     Indication: PULMONARY ARTERIAL HYPERTENSION
     Dosage: 125 mg, bid
     Route: 048
     Dates: start: 20110202, end: 20111101
  2. RIBOFLAVIN [Concomitant]
  3. VITAMIN D3 [Concomitant]
  4. DOCUSATE CALCIUM [Concomitant]
  5. NORCO [Concomitant]

REACTIONS (9)
  - Foetal disorder [Recovered/Resolved]
  - Pleural effusion [Recovered/Resolved]
  - Pulmonary hypertension [Unknown]
  - Condition aggravated [Unknown]
  - Pregnancy [Unknown]
  - Caesarean section [Unknown]
  - Maternal exposure during pregnancy [None]
  - Pregnancy with contraceptive device [None]
  - Premature delivery [None]
